FAERS Safety Report 12489917 (Version 1)
Quarter: 2016Q2

REPORT INFORMATION
  Report Type: Spontaneous
  Country: US (occurrence: US)
  Receive Date: 20160622
  Receipt Date: 20160622
  Transmission Date: 20160815
  Serious: No
  Sender: FDA-Public Use
  Company Number: US-PRESTIGE BRANDS -1054193

PATIENT
  Age: 15 Year
  Sex: Female

DRUGS (1)
  1. NIX COMPLETE MAXIMUM STRENGTH LICE ELIMINATION [Suspect]
     Active Substance: PERMETHRIN
     Indication: LICE INFESTATION
     Route: 061

REACTIONS (4)
  - Pain of skin [Recovered/Resolved]
  - Drug ineffective [Recovered/Resolved]
  - Burning sensation [None]
  - Abdominal discomfort [Recovered/Resolved]
